FAERS Safety Report 19703497 (Version 5)
Quarter: 2022Q3

REPORT INFORMATION
  Report Type: Spontaneous
  Country: AU (occurrence: AU)
  Receive Date: 20210816
  Receipt Date: 20220921
  Transmission Date: 20221027
  Serious: Yes (Death, Life-Threatening, Hospitalization, Other)
  Sender: FDA-Public Use
  Company Number: AU-GENERIC HEALTH PTY. LTD.-2021-14843

PATIENT
  Age: 79 Year
  Sex: Male

DRUGS (5)
  1. ROSUVASTATIN [Suspect]
     Active Substance: ROSUVASTATIN
     Indication: Hypercholesterolaemia
     Dosage: 40 MILLIGRAM, QD
     Route: 065
  2. EZETIMIBE [Suspect]
     Active Substance: EZETIMIBE
     Indication: Hypercholesterolaemia
     Dosage: 10 MILLIGRAM, QD
     Route: 065
  3. METFORMIN HYDROCHLORIDE\SITAGLIPTIN [Suspect]
     Active Substance: METFORMIN HYDROCHLORIDE\SITAGLIPTIN
     Indication: Type 2 diabetes mellitus
     Dosage: UNK 50 MG/1000 MG TWICE DAILY
     Route: 065
  4. PERINDOPRIL + AMLODIPINA CICLUM [Concomitant]
     Indication: Hypertension
     Dosage: UNKAMLODIPINE 10 MG, PERINDOPRIL 10 MG  PER DAY
     Route: 065
  5. METOPROLOL [Concomitant]
     Active Substance: METOPROLOL
     Indication: Hypertension
     Dosage: 50 MILLIGRAM, BID
     Route: 065

REACTIONS (7)
  - Renal failure [Fatal]
  - Hepatic function abnormal [Fatal]
  - Renal tubular necrosis [Fatal]
  - Muscle necrosis [Fatal]
  - Hyperkalaemia [Fatal]
  - Metabolic acidosis [Fatal]
  - Weight decreased [Unknown]
